FAERS Safety Report 5727588-2 (Version None)
Quarter: 2008Q2

REPORT INFORMATION
  Report Type: 
  Country: None (occurrence: None)
  Receive Date: 20080505
  Receipt Date: 20080502
  Transmission Date: 20081010
  Serious: Yes (Hospitalization)
  Sender: FDA-Public Use
  Company Number: ES-BRISTOL-MYERS SQUIBB COMPANY-14127096

PATIENT
  Age: 66 Year
  Sex: Male

DRUGS (4)
  1. CISPLATIN [Suspect]
     Indication: NEOPLASM MALIGNANT
     Dosage: FORM - INJECTION
     Route: 042
  2. RADIOTHERAPY [Suspect]
     Indication: NEOPLASM MALIGNANT
     Route: 061
  3. BLINDED: LAPATINIB [Suspect]
     Indication: NEOPLASM MALIGNANT
     Route: 048
     Dates: start: 20080206
  4. BLINDED: PLACEBO [Suspect]
     Indication: NEOPLASM MALIGNANT
     Route: 048
     Dates: start: 20080206

REACTIONS (2)
  - ANOREXIA [None]
  - MUCOSAL INFLAMMATION [None]
